FAERS Safety Report 9312365 (Version 1)
Quarter: 2013Q2

REPORT INFORMATION
  Report Type: Spontaneous
  Country: US (occurrence: None)
  Receive Date: 20130509
  Receipt Date: 20130509
  Transmission Date: 20140414
  Serious: Yes (Other)
  Sender: FDA-Public Use
  Company Number: 2013035781

PATIENT
  Age: 66 Year
  Sex: Male

DRUGS (1)
  1. HIZENTRA (IMMUNOGLOBULIN HUMAN NORMAL) [Suspect]
     Indication: IMMUNODEFICIENCY
     Route: 058
     Dates: start: 2011, end: 2013

REACTIONS (1)
  - Haemoglobin decreased [None]
